FAERS Safety Report 17682996 (Version 3)
Quarter: 2024Q2

REPORT INFORMATION
  Report Type: Spontaneous
  Country: US (occurrence: US)
  Receive Date: 20200420
  Receipt Date: 20240424
  Transmission Date: 20240716
  Serious: No
  Sender: FDA-Public Use
  Company Number: US-BAYER-2020-056636

PATIENT
  Age: 57 Year
  Sex: Female

DRUGS (1)
  1. CLIMARA PRO [Suspect]
     Active Substance: ESTRADIOL\LEVONORGESTREL
     Indication: Menopause
     Dosage: UNK
     Route: 062
     Dates: start: 201912

REACTIONS (3)
  - Application site burn [None]
  - Product adhesion issue [Not Recovered/Not Resolved]
  - Wrong technique in product usage process [None]

NARRATIVE: CASE EVENT DATE: 20200101
